FAERS Safety Report 5261057-1 (Version None)
Quarter: 2007Q1

REPORT INFORMATION
  Report Type: 
  Country: None (occurrence: None)
  Receive Date: 20070309
  Receipt Date: 20070228
  Transmission Date: 20070707
  Serious: Yes (Disabling)
  Sender: FDA-Public Use
  Company Number: IL-ELI_LILLY_AND_COMPANY-IL200702004199

PATIENT
  Age: 66 Year
  Sex: Male
  Weight: 68 kg

DRUGS (5)
  1. CIALIS [Suspect]
     Indication: ERECTILE DYSFUNCTION
     Dosage: 20 MG, AS NEEDED
     Route: 048
     Dates: start: 20060801, end: 20070221
  2. ASPIRIN [Concomitant]
     Dosage: 10 MG, DAILY (1/D)
     Route: 048
  3. NORMITEN [Concomitant]
     Dosage: 20 MG, DAILY (1/D)
     Route: 048
  4. OSMO-ADALAT [Concomitant]
     Dosage: 60 MG, DAILY (1/D)
     Route: 048
  5. ASCORBIC ACID [Concomitant]
     Dosage: UNK, DAILY (1/D)
     Route: 048

REACTIONS (1)
  - OPTIC NERVE DISORDER [None]
